FAERS Safety Report 9537592 (Version 2)
Quarter: 2013Q3

REPORT INFORMATION
  Report Type: Spontaneous
  Country: US (occurrence: US)
  Receive Date: 20130919
  Receipt Date: 20130919
  Transmission Date: 20140515
  Serious: Yes (Hospitalization, Other)
  Sender: FDA-Public Use
  Company Number: US-DENDREON CORPORATION-2013PROUSA02986

PATIENT
  Age: 85 Year
  Sex: Male

DRUGS (15)
  1. PROVENGE [Suspect]
     Indication: PROSTATE CANCER METASTATIC
     Dosage: 250 ML, SINGLE
     Route: 042
     Dates: start: 20130617, end: 20130617
  2. PROVENGE [Suspect]
     Dosage: 250 ML, SINGLE
     Route: 042
     Dates: start: 20130701, end: 20130701
  3. PROVENGE [Suspect]
     Dosage: 250 ML, SINGLE
     Route: 042
     Dates: start: 20130802, end: 20130802
  4. ASPIRIN [Concomitant]
     Indication: ATRIAL FIBRILLATION
     Dosage: 81 MG, QD
  5. CARTIA XT [Concomitant]
     Dosage: 360 UNK, HS
  6. CIPROFLOXACIN [Concomitant]
     Indication: URINARY TRACT INFECTION
     Dosage: 250 UNK, BID
     Dates: start: 201308
  7. COLACE [Concomitant]
     Dosage: 100 UNK, BID
  8. DIGOXIN [Concomitant]
     Dosage: 0.125 UNK, UNK
  9. GABAPENTIN [Concomitant]
     Dosage: 300 UNK, TID
  10. LISINOPRIL [Concomitant]
     Dosage: 5 MG, QD
  11. METOPROLOL TARTRATE [Concomitant]
     Dosage: 25 MG, BID
  12. MULTIVITAMIN [Concomitant]
     Dosage: 1 UNK, QD
  13. OMEPRAZOLE [Concomitant]
     Dosage: 20 UNK, QD
  14. SLOW RELEASE IRON [Concomitant]
     Dosage: UNK UNK, QD
  15. VITAMIN B12 [Concomitant]
     Dosage: 1000 MCG, QD

REACTIONS (5)
  - Fall [Recovered/Resolved]
  - Rib fracture [Unknown]
  - Gastrointestinal haemorrhage [Unknown]
  - Urinary tract infection [Unknown]
  - Decreased appetite [Unknown]
